FAERS Safety Report 9581430 (Version 3)
Quarter: 2013Q4

REPORT INFORMATION
  Report Type: Spontaneous
  Country: GB (occurrence: GB)
  Receive Date: 20131002
  Receipt Date: 20131022
  Transmission Date: 20140711
  Serious: Yes (Death, Life-Threatening, Hospitalization)
  Sender: FDA-Public Use
  Company Number: GB-BRACCO-000577

PATIENT
  Age: 68 Year
  Sex: Male

DRUGS (1)
  1. MULTIHANCE [Suspect]
     Indication: ANGIOGRAM
     Dosage: STRENGTH: 334 MG/ML, OTHERS: PL 06099/0006
     Route: 042
     Dates: start: 20121005, end: 20121005

REACTIONS (4)
  - Anaphylactic reaction [Recovered/Resolved]
  - Cardiac arrest [Recovered/Resolved]
  - Death [Fatal]
  - Haemorrhage intracranial [Not Recovered/Not Resolved]
